FAERS Safety Report 15271743 (Version 7)
Quarter: 2021Q4

REPORT INFORMATION
  Report Type: Spontaneous
  Country: DE (occurrence: DE)
  Receive Date: 20180813
  Receipt Date: 20211216
  Transmission Date: 20220303
  Serious: Yes (Hospitalization)
  Sender: FDA-Public Use
  Company Number: PHHY2018DE068473

PATIENT
  Age: 79 Year
  Sex: Female

DRUGS (16)
  1. PIPAMPERONE [Interacting]
     Active Substance: PIPAMPERONE
     Indication: Product used for unknown indication
     Dosage: 60 MG (DOSAGE FORM: UNSPECIFIED )
     Route: 048
     Dates: start: 20180213, end: 20180221
  2. RISPERIDONE [Interacting]
     Active Substance: RISPERIDONE
     Indication: Product used for unknown indication
     Dosage: 2.5 MG, QD (0 TO 2.5 MG)
     Route: 048
     Dates: start: 20161201, end: 20180212
  3. RISPERIDONE [Interacting]
     Active Substance: RISPERIDONE
     Dosage: 1 MG (DOSAGE FORM: UNSPECIFIED)
     Route: 048
     Dates: start: 20180213, end: 20180221
  4. RISPERIDONE [Interacting]
     Active Substance: RISPERIDONE
     Dosage: 0.5 MG (DOSAGE FORM: UNSPECIFIED)
     Route: 048
     Dates: start: 20180222
  5. MIRTAZAPINE [Concomitant]
     Active Substance: MIRTAZAPINE
     Indication: Product used for unknown indication
     Dosage: 30 MG (DOSAGE FORM: UNSPECIFIED)
     Route: 048
     Dates: start: 20180213, end: 20180221
  6. ACTRAPID [Concomitant]
     Active Substance: INSULIN HUMAN
     Indication: Diabetes mellitus
     Dosage: UNK (IE)
     Route: 058
     Dates: end: 20180221
  7. ELIQUIS [Concomitant]
     Active Substance: APIXABAN
     Indication: Product used for unknown indication
     Dosage: 10 MG (DOSAGE FORM: UNSPECIFIED)
     Route: 048
     Dates: end: 20180221
  8. ENALAPRIL [Concomitant]
     Active Substance: ENALAPRIL
     Indication: Product used for unknown indication
     Dosage: 20 MG (DOSAGE FORM: UNSPECIFIED)
     Route: 048
     Dates: end: 20180220
  9. ENALAPRIL [Concomitant]
     Active Substance: ENALAPRIL
     Dosage: 15 MG, QD
     Route: 048
     Dates: start: 20180221, end: 20180221
  10. DORZOLAMIDE HYDROCHLORIDE\TIMOLOL MALEATE [Concomitant]
     Active Substance: DORZOLAMIDE HYDROCHLORIDE\TIMOLOL MALEATE
     Indication: Product used for unknown indication
     Dosage: 2 DRP, QD
     Route: 047
     Dates: end: 20180221
  11. PREDNIFLUID [Concomitant]
     Indication: Product used for unknown indication
     Dosage: 2 DRP, QD
     Route: 047
     Dates: end: 20180221
  12. SIMVASTATIN [Concomitant]
     Active Substance: SIMVASTATIN
     Indication: Product used for unknown indication
     Dosage: 20 MG (DOSAGE FORM: UNSPECIFIED)
     Route: 048
     Dates: end: 20180221
  13. LANTUS [Concomitant]
     Active Substance: INSULIN GLARGINE
     Indication: Diabetes mellitus
     Dosage: 20 IU, QD (20 IE)
     Route: 058
     Dates: end: 20180221
  14. BRIMONIDINE [Concomitant]
     Active Substance: BRIMONIDINE TARTRATE
     Indication: Product used for unknown indication
     Dosage: 2 GTT, QD
     Route: 047
     Dates: end: 20180221
  15. AUGENTROPFEN [Concomitant]
     Indication: Product used for unknown indication
     Dosage: 20 DRP (DOSAGE FORM: UNSPECIFIED)
     Route: 065
  16. MIRTAZAPINE [Concomitant]
     Active Substance: MIRTAZAPINE
     Indication: Product used for unknown indication
     Route: 065

REACTIONS (2)
  - Drug interaction [Recovering/Resolving]
  - Rabbit syndrome [Recovering/Resolving]

NARRATIVE: CASE EVENT DATE: 20180221
